FAERS Safety Report 8764161 (Version 1)
Quarter: 2012Q4

REPORT INFORMATION
  Report Type: 
  Country: US (occurrence: US)
  Receive Date: 20120831
  Receipt Date: 20120831
  Transmission Date: 20130627
  Serious: Yes (Other)
  Sender: FDA-Public Use
  Company Number: US-RANBAXY-2012US-59424

PATIENT
  Age: 61 Year
  Sex: Male

DRUGS (5)
  1. METFORMIN [Suspect]
     Indication: PRODUCT USED FOR UNKNOWN INDICATION
     Dosage: UNK
     Route: 065
     Dates: start: 20100122
  2. PIOGLITAZONE [Suspect]
     Indication: PRODUCT USED FOR UNKNOWN INDICATION
     Dosage: 45 mg, daily
     Route: 065
     Dates: start: 20100122
  3. ROSIGLITAZONE [Suspect]
     Indication: PRODUCT USED FOR UNKNOWN INDICATION
     Dosage: 4mg/1000mg,bid
     Route: 065
  4. CLOPIDOGREL [Concomitant]
     Indication: STENT PLACEMENT
     Dosage: UNK
     Route: 065
  5. ASPIRIN [Concomitant]
     Indication: STENT PLACEMENT
     Route: 065

REACTIONS (1)
  - Fluorescent in situ hybridisation [Recovered/Resolved]
